FAERS Safety Report 9895962 (Version 1)
Quarter: 2014Q1

REPORT INFORMATION
  Report Type: Spontaneous
  Country: PR (occurrence: PR)
  Receive Date: 20140213
  Receipt Date: 20140213
  Transmission Date: 20141002
  Serious: No
  Sender: FDA-Public Use
  Company Number: PR-BRISTOL-MYERS SQUIBB COMPANY-17405200

PATIENT
  Age: 59 Year
  Sex: Female
  Weight: 114 kg

DRUGS (1)
  1. ORENCIA [Suspect]
     Dosage: 1 DF: 4 VIALS;?RECENT: 2ND INFUSION
     Route: 042

REACTIONS (2)
  - Headache [Unknown]
  - Vaginal infection [Unknown]
